FAERS Safety Report 5398874-3 (Version None)
Quarter: 2007Q3

REPORT INFORMATION
  Report Type: 
  Country: None (occurrence: None)
  Receive Date: 20070727
  Receipt Date: 20070723
  Transmission Date: 20080115
  Serious: Yes (Hospitalization, Other)
  Sender: FDA-Public Use
  Company Number: PHEH2007US06066

PATIENT
  Sex: Female
  Weight: 72.562 kg

DRUGS (13)
  1. ZELNORM [Suspect]
     Indication: CONSTIPATION
     Dosage: 6 MG, BID
     Dates: start: 20020101
  2. ZELNORM [Suspect]
     Dosage: 6 MG, QD
     Dates: start: 20030101, end: 20070423
  3. CELEBREX [Concomitant]
  4. B12 ^RECIP^ [Concomitant]
  5. ATENOLOL [Concomitant]
  6. XANAX [Concomitant]
  7. EVISTA [Concomitant]
  8. HYDROCHLOROTHIAZIDE [Concomitant]
  9. NASONEX [Concomitant]
  10. ASPIRIN [Concomitant]
  11. ZOCOR [Concomitant]
  12. IRON [Concomitant]
  13. PROTONIX [Concomitant]

REACTIONS (6)
  - ANGINA PECTORIS [None]
  - ASTHENIA [None]
  - CHEST PAIN [None]
  - CORONARY ARTERY DISEASE [None]
  - DIZZINESS [None]
  - DYSPNOEA [None]
